FAERS Safety Report 24937434 (Version 3)
Quarter: 2025Q3

REPORT INFORMATION
  Report Type: Report from Study
  Country: JP (occurrence: JP)
  Receive Date: 20250206
  Receipt Date: 20250701
  Transmission Date: 20251020
  Serious: Yes (Death, Life-Threatening, Hospitalization, Other)
  Sender: AKEBIA THERAPEUTICS
  Company Number: JP-MTPC-MTPC2022-0034137

PATIENT
  Age: 56 Year
  Sex: Male
  Weight: 77.6 kg

DRUGS (27)
  1. VADADUSTAT [Suspect]
     Active Substance: VADADUSTAT
     Indication: Nephrogenic anaemia
     Dosage: 300 MILLIGRAM, QD
     Route: 048
     Dates: start: 20220823, end: 20221125
  2. VADADUSTAT [Suspect]
     Active Substance: VADADUSTAT
     Dosage: 300 MILLIGRAM, QD
     Route: 048
     Dates: start: 20221128, end: 20221212
  3. DAPRODUSTAT [Concomitant]
     Active Substance: DAPRODUSTAT
     Indication: Nephrogenic anaemia
     Dosage: 2 MILLIGRAM, QD
     Route: 048
     Dates: start: 202109, end: 20220822
  4. DARBEPOETIN ALFA [Concomitant]
     Active Substance: DARBEPOETIN ALFA
     Indication: Nephrogenic anaemia
     Dosage: 30 MICROGRAM, 1/WEEK
     Route: 042
     Dates: start: 20221125, end: 20230111
  5. DARBEPOETIN ALFA [Concomitant]
     Active Substance: DARBEPOETIN ALFA
     Dosage: 40 MICROGRAM, 3/WEEK
     Route: 042
     Dates: start: 20230113, end: 20230215
  6. PITAVASTATIN CALCIUM [Concomitant]
     Active Substance: PITAVASTATIN CALCIUM
     Indication: Illness
     Dosage: 4 MILLIGRAM, QD
     Route: 048
     Dates: start: 20221212
  7. CLOPIDOGREL BISULFATE [Concomitant]
     Active Substance: CLOPIDOGREL BISULFATE
     Indication: Illness
     Dosage: 75 MILLIGRAM, QD
     Route: 048
     Dates: start: 20221216
  8. BISOPROLOL FUMARATE [Concomitant]
     Active Substance: BISOPROLOL FUMARATE
     Indication: Illness
     Dosage: 1.25 MILLIGRAM, QD
     Route: 048
     Dates: start: 20221223
  9. MIDODRINE HYDROCHLORIDE [Concomitant]
     Active Substance: MIDODRINE HYDROCHLORIDE
     Indication: Illness
     Dosage: 8 MILLIGRAM, QD
     Route: 048
     Dates: start: 20230116
  10. ZOLPIDEM TARTRATE [Concomitant]
     Active Substance: ZOLPIDEM TARTRATE
     Indication: Illness
     Dosage: 10 MILLIGRAM, QD
     Route: 048
     Dates: start: 20230118
  11. AMEZINIUM METILSULFATE [Concomitant]
     Active Substance: AMEZINIUM METILSULFATE
     Indication: Illness
     Dosage: 10 MILLIGRAM, QD
     Route: 048
     Dates: start: 20230120
  12. MAGNESIUM OXIDE [Concomitant]
     Active Substance: MAGNESIUM OXIDE
     Indication: Illness
     Dosage: 660 MILLIGRAM, QD
     Route: 048
     Dates: start: 20230125
  13. LINZESS [Concomitant]
     Active Substance: LINACLOTIDE
     Indication: Illness
     Dosage: 0.25 MILLIGRAM, QD
     Route: 048
     Dates: start: 20230210
  14. METHOXY POLYETHYLENE GLYCOL-EPOETIN BETA [Concomitant]
     Active Substance: METHOXY POLYETHYLENE GLYCOL-EPOETIN BETA
     Indication: Nephrogenic anaemia
     Dosage: 50 MICROGRAM, 3/WEEK
     Route: 042
     Dates: start: 20230215
  15. AZOSEMIDE [Concomitant]
     Active Substance: AZOSEMIDE
     Indication: Illness
     Dosage: 30 MILLIGRAM, QD
     Route: 048
     Dates: end: 20221124
  16. CARVEDILOL [Concomitant]
     Active Substance: CARVEDILOL
     Indication: Illness
     Dosage: 2.5 MILLIGRAM, QD
     Route: 048
     Dates: end: 20221124
  17. ASPIRIN [Concomitant]
     Active Substance: ASPIRIN
     Indication: Illness
     Dosage: 100 MILLIGRAM, QD
     Route: 048
  18. ROCALTROL [Concomitant]
     Active Substance: CALCITRIOL
     Indication: Illness
     Dosage: 0.25 MICROGRAM, QD
     Route: 048
     Dates: end: 20221214
  19. SENNOSIDES A AND B [Concomitant]
     Active Substance: SENNOSIDES A AND B
     Indication: Illness
     Dosage: 24 MILLIGRAM, QD
     Route: 048
  20. NICORANDIL [Concomitant]
     Active Substance: NICORANDIL
     Indication: Illness
     Dosage: 15 MILLIGRAM, QD
     Route: 048
     Dates: end: 20221214
  21. WARFARIN POTASSIUM [Concomitant]
     Active Substance: WARFARIN POTASSIUM
     Indication: Illness
     Dosage: 2 MILLIGRAM, QD
     Route: 048
     Dates: end: 20221214
  22. FEBUXOSTAT [Concomitant]
     Active Substance: FEBUXOSTAT
     Indication: Illness
     Dosage: 20 MILLIGRAM, QD
     Route: 048
     Dates: end: 20221214
  23. LANSOPRAZOLE [Concomitant]
     Active Substance: LANSOPRAZOLE
     Indication: Illness
     Dosage: 15 MILLIGRAM, QD
     Route: 048
  24. SODIUM PICOSULFATE [Concomitant]
     Active Substance: SODIUM PICOSULFATE
     Indication: Illness
     Route: 048
     Dates: end: 20221214
  25. ETIZOLAM [Concomitant]
     Active Substance: ETIZOLAM
     Indication: Illness
     Dosage: 0.5 MILLIGRAM, QD
     Route: 048
     Dates: end: 20221214
  26. KREMEZIN [Concomitant]
     Active Substance: ACTIVATED CHARCOAL
     Indication: Illness
     Dosage: 6 GRAM, QD
     Route: 048
     Dates: end: 20221214
  27. INFLUENZA VIRUS VACCINE [Concomitant]
     Active Substance: INFLUENZA VIRUS VACCINE
     Indication: Product used for unknown indication
     Route: 051

REACTIONS (7)
  - Colon cancer [Fatal]
  - Gastrointestinal haemorrhage [Fatal]
  - Shock [Recovered/Resolved]
  - Peripheral arterial occlusive disease [Recovering/Resolving]
  - Hypotension [Not Recovered/Not Resolved]
  - Dialysis [Not Recovered/Not Resolved]
  - Acute myocardial infarction [Recovering/Resolving]

NARRATIVE: CASE EVENT DATE: 20221125
